FAERS Safety Report 4301945-3 (Version None)
Quarter: 2004Q1

REPORT INFORMATION
  Report Type: 
  Country: None (occurrence: None)
  Receive Date: 20040220
  Receipt Date: 20040213
  Transmission Date: 20041129
  Serious: Yes (Hospitalization)
  Sender: FDA-Public Use
  Company Number: 2004PK00338

PATIENT
  Age: 49 Year
  Sex: Female
  Weight: 76 kg

DRUGS (10)
  1. PLENDIL [Suspect]
     Indication: HYPERTENSION
     Dosage: 5 MG DAILY PO
     Route: 048
  2. SORTIS [Suspect]
     Indication: HYPERLIPIDAEMIA
     Dosage: 40 MG DAILY PO
     Route: 048
     Dates: start: 20040109, end: 20040122
  3. NEORAL [Suspect]
     Indication: RENAL TRANSPLANT
     Dosage: 100 MG DAILY PO
     Route: 048
  4. PREDNISONE [Concomitant]
  5. CELLCEPT [Concomitant]
  6. TOREM [Concomitant]
  7. LOPRESOR - SLOW RELEASE [Concomitant]
  8. ZYRTEC [Concomitant]
  9. ARANESP [Concomitant]
  10. CALCIUM ACETATE [Concomitant]

REACTIONS (7)
  - CONDITION AGGRAVATED [None]
  - DRUG INTERACTION [None]
  - HYPERKALAEMIA [None]
  - HYPERLIPIDAEMIA [None]
  - PRURITUS [None]
  - RENAL FAILURE [None]
  - RHABDOMYOLYSIS [None]
